FAERS Safety Report 23701295 (Version 1)
Quarter: 2024Q2

REPORT INFORMATION
  Report Type: Spontaneous
  Country: FR (occurrence: FR)
  Receive Date: 20240403
  Receipt Date: 20240403
  Transmission Date: 20240716
  Serious: Yes (Other)
  Sender: FDA-Public Use
  Company Number: FR-SANOFI-01990459

PATIENT
  Sex: Female

DRUGS (1)
  1. CORTIZONE 10 EASY RELIEF [Suspect]
     Active Substance: HYDROCORTISONE
     Indication: Product used for unknown indication
     Dosage: 1 DF, Q8H

REACTIONS (3)
  - Optic atrophy [Unknown]
  - Myopia [Unknown]
  - Visual impairment [Unknown]
